FAERS Safety Report 12695928 (Version 3)
Quarter: 2016Q3

REPORT INFORMATION
  Report Type: Spontaneous
  Country: US (occurrence: US)
  Receive Date: 20160829
  Receipt Date: 20160921
  Transmission Date: 20161109
  Serious: Yes (Death)
  Sender: FDA-Public Use
  Company Number: US-ACTELION-A-US2016-141220

PATIENT
  Age: 35 Year
  Sex: Female

DRUGS (19)
  1. NORCO [Concomitant]
     Active Substance: ACETAMINOPHEN\HYDROCODONE BITARTRATE
     Dosage: 1/2 TAB, BID, PRN
     Dates: start: 20131001
  2. PROAIR HFA [Concomitant]
     Active Substance: ALBUTEROL SULFATE
     Indication: DYSPNOEA
     Dosage: 2 PUFF, Q6HRS PRN
     Dates: start: 20120407
  3. TRACLEER [Suspect]
     Active Substance: BOSENTAN
     Indication: PULMONARY HYPERTENSION
     Dosage: 125 MG, BID
     Route: 048
     Dates: start: 20070628, end: 20160726
  4. FOLIC ACID. [Concomitant]
     Active Substance: FOLIC ACID
  5. HYDROXYCHLOROQUINE [Concomitant]
     Active Substance: HYDROXYCHLOROQUINE
     Dosage: 200 MG, QD
     Route: 048
     Dates: start: 20090706
  6. SILDENAFIL. [Concomitant]
     Active Substance: SILDENAFIL
     Dosage: 100 MG, TID
     Route: 048
     Dates: start: 20091221
  7. LASIX [Concomitant]
     Active Substance: FUROSEMIDE
     Dosage: 40 MG, QD
     Route: 048
     Dates: start: 20090822
  8. METHOTREXATE. [Concomitant]
     Active Substance: METHOTREXATE
     Dosage: 8-2.5 MG, TABS/WK
     Dates: start: 20141130
  9. FERROUS GLUCONATE [Concomitant]
     Active Substance: FERROUS GLUCONATE
  10. FLONASE [Concomitant]
     Active Substance: FLUTICASONE PROPIONATE
     Dosage: UNK, PRN
  11. OXYGEN. [Concomitant]
     Active Substance: OXYGEN
     Dosage: 3 L/MIN, QPM
  12. DIGOXIN. [Concomitant]
     Active Substance: DIGOXIN
     Dosage: 0.25 MG, QD
     Route: 048
     Dates: start: 20070407
  13. PLAQUENIL [Concomitant]
     Active Substance: HYDROXYCHLOROQUINE SULFATE
     Dosage: 200 MG, QD
     Dates: start: 20090706
  14. REMODULIN [Concomitant]
     Active Substance: TREPROSTINIL
     Dosage: 129 NG/KG, PER MIN
     Route: 042
     Dates: start: 201007, end: 20160726
  15. SPIRONOLACTONE. [Concomitant]
     Active Substance: SPIRONOLACTONE
     Dosage: 50 MG, QD
     Route: 048
     Dates: start: 20110219
  16. ZOFRAN [Concomitant]
     Active Substance: ONDANSETRON HYDROCHLORIDE
  17. OMEPRAZOLE. [Concomitant]
     Active Substance: OMEPRAZOLE
     Dosage: 20 MG, BID
     Route: 048
     Dates: start: 20101203
  18. DEPO-PROVERA [Concomitant]
     Active Substance: MEDROXYPROGESTERONE ACETATE
  19. ATIVAN [Concomitant]
     Active Substance: LORAZEPAM

REACTIONS (1)
  - Cardiac arrest [Fatal]
